FAERS Safety Report 18204332 (Version 2)
Quarter: 2020Q4

REPORT INFORMATION
  Report Type: Spontaneous
  Country: US (occurrence: US)
  Receive Date: 20200828
  Receipt Date: 20201017
  Transmission Date: 20210113
  Serious: No
  Sender: FDA-Public Use
  Company Number: NVSC2020US232799

PATIENT
  Sex: Female

DRUGS (2)
  1. COSENTYX [Suspect]
     Active Substance: SECUKINUMAB
     Dosage: 150 MG, Q4W
     Route: 065
     Dates: start: 201912
  2. COSENTYX [Suspect]
     Active Substance: SECUKINUMAB
     Indication: PRODUCT USED FOR UNKNOWN INDICATION
     Dosage: 150 MG, BID(EVERY 4 WEEKS)
     Route: 065

REACTIONS (5)
  - Asthenia [Unknown]
  - Mobility decreased [Unknown]
  - Fatigue [Unknown]
  - Malaise [Unknown]
  - Pain [Unknown]
